FAERS Safety Report 20835866 (Version 2)
Quarter: 2022Q2

REPORT INFORMATION
  Report Type: Report from Study
  Country: IN (occurrence: IN)
  Receive Date: 20220516
  Receipt Date: 20220523
  Transmission Date: 20220721
  Serious: Yes (Hospitalization, Other)
  Sender: FDA-Public Use
  Company Number: IN-009507513-2112IND001992

PATIENT
  Age: 52 Year
  Sex: Female

DRUGS (1)
  1. PEMBROLIZUMAB [Suspect]
     Active Substance: PEMBROLIZUMAB
     Indication: Lung neoplasm malignant
     Dosage: 200 MILLIGRAM
     Route: 042

REACTIONS (4)
  - Cardiac arrest [Unknown]
  - Loss of consciousness [Unknown]
  - Pneumonia [Unknown]
  - Vomiting [Unknown]
